FAERS Safety Report 15958004 (Version 1)
Quarter: 2019Q1

REPORT INFORMATION
  Report Type: Other
  Country: None (occurrence: AT)
  Receive Date: 20190213
  Receipt Date: 20190213
  Transmission Date: 20190417
  Serious: Yes (Other)
  Sender: FDA-Public Use
  Company Number: AT-LABORATOIRE HRA PHARMA-2062631

PATIENT
  Age: 44 Year
  Sex: Female
  Weight: 58 kg

DRUGS (1)
  1. ELLA [Suspect]
     Active Substance: ULIPRISTAL ACETATE
     Indication: POST COITAL CONTRACEPTION
     Route: 048
     Dates: start: 20181231, end: 20181231

REACTIONS (3)
  - Abortion spontaneous [None]
  - Vaginal haemorrhage [None]
  - Unintended pregnancy [None]

NARRATIVE: CASE EVENT DATE: 20190122
